FAERS Safety Report 5333231-7 (Version None)
Quarter: 2007Q2

REPORT INFORMATION
  Report Type: 
  Country: None (occurrence: None)
  Receive Date: 20070521
  Receipt Date: 20070521
  Transmission Date: 20071010
  Serious: Yes (Hospitalization)
  Sender: FDA-Public Use
  Company Number: None

PATIENT
  Sex: Male
  Weight: 68 kg

DRUGS (29)
  1. TEMOZOLOMIDE [Suspect]
     Dosage: 2940 MG
     Dates: start: 20070409, end: 20070429
  2. AMIODARONE HCL [Concomitant]
  3. ARICEPT [Concomitant]
  4. ASPIRIN [Concomitant]
  5. COMPAZINE [Concomitant]
  6. DECADRON [Concomitant]
  7. DIFLUCAN [Concomitant]
  8. DULCOLAX [Concomitant]
  9. IMDUR [Concomitant]
  10. ISORDIL [Concomitant]
  11. KYTRIL [Concomitant]
  12. LOPRESSOR [Concomitant]
  13. LORTAB [Concomitant]
  14. MIRACLE MOUTH WASH [Concomitant]
  15. MORPHINE SULFATE [Concomitant]
  16. NAMENDA [Concomitant]
  17. NITROSTAT [Concomitant]
  18. PACERONE [Concomitant]
  19. PREVACID [Concomitant]
  20. PROCRIT [Concomitant]
  21. PROMETHAZINE [Concomitant]
  22. PROTONIX [Concomitant]
  23. REMERON [Concomitant]
  24. GUAIFENESIN [Concomitant]
  25. SENEKOT S [Concomitant]
  26. TRAMADOL HCL [Concomitant]
  27. TYLENOL [Concomitant]
  28. VASOTEC [Concomitant]
  29. ZOFRAN [Concomitant]

REACTIONS (4)
  - ASTHENIA [None]
  - CHEST PAIN [None]
  - DISEASE RECURRENCE [None]
  - URINARY TRACT INFECTION [None]
